FAERS Safety Report 8390031-1 (Version None)
Quarter: 2012Q2

REPORT INFORMATION
  Report Type: 
  Country: None (occurrence: None)
  Receive Date: 20120529
  Receipt Date: 20120514
  Transmission Date: 20120825
  Serious: Yes (Hospitalization)
  Sender: FDA-Public Use
  Company Number: US-JNJFOC-20120514044

PATIENT
  Sex: Male
  Weight: 117.94 kg

DRUGS (7)
  1. ANTI-DEPRESSANT (UNKNOWN) [Suspect]
     Indication: BIPOLAR DISORDER
     Route: 065
  2. DURAGESIC-100 [Suspect]
     Indication: PAIN
     Route: 062
  3. DURAGESIC-100 [Suspect]
     Route: 062
  4. UNKNOWN ANTIPSYCHOTIC [Suspect]
     Indication: BIPOLAR DISORDER
     Route: 065
  5. MS CONTIN [Suspect]
     Indication: PAIN
     Route: 065
  6. COUMADIN [Suspect]
     Indication: THROMBOSIS
     Route: 065
  7. DURAGESIC-100 [Suspect]
     Route: 062

REACTIONS (14)
  - PRODUCT QUALITY ISSUE [None]
  - WRONG TECHNIQUE IN DRUG USAGE PROCESS [None]
  - SUICIDAL IDEATION [None]
  - DRUG INEFFECTIVE [None]
  - THERAPEUTIC RESPONSE DECREASED [None]
  - ERYTHEMA [None]
  - DEPRESSION [None]
  - HYPERHIDROSIS [None]
  - BODY TEMPERATURE INCREASED [None]
  - PRURITUS [None]
  - THROMBOSIS [None]
  - INFARCTION [None]
  - DEEP VEIN THROMBOSIS [None]
  - APPLICATION SITE PERSPIRATION [None]
